FAERS Safety Report 6721670-9 (Version None)
Quarter: 2010Q2

REPORT INFORMATION
  Report Type: 
  Country: None (occurrence: None)
  Receive Date: 20100510
  Receipt Date: 20100427
  Transmission Date: 20101027
  Serious: Yes (Hospitalization)
  Sender: FDA-Public Use
  Company Number: 011243

PATIENT
  Sex: Female
  Weight: 81.8 kg

DRUGS (1)
  1. CERTOLIZUMAB PEGOL [Suspect]
     Indication: CROHN'S DISEASE
     Dosage: (400 MG 1X/2 WEEKS SUBCUTANEOUS)
     Route: 058
     Dates: start: 20090501

REACTIONS (9)
  - BLOOD SODIUM DECREASED [None]
  - DEHYDRATION [None]
  - GASTROENTERITIS [None]
  - HAEMATOCRIT DECREASED [None]
  - HAEMOGLOBIN DECREASED [None]
  - HYPERTENSION [None]
  - MONOCYTE PERCENTAGE INCREASED [None]
  - PLATELET COUNT INCREASED [None]
  - TACHYCARDIA [None]
